FAERS Safety Report 17974813 (Version 1)
Quarter: 2020Q3

REPORT INFORMATION
  Report Type: Spontaneous
  Country: CA (occurrence: CA)
  Receive Date: 20200702
  Receipt Date: 20200702
  Transmission Date: 20201103
  Serious: Yes (Other)
  Sender: FDA-Public Use
  Company Number: CA-ELI_LILLY_AND_COMPANY-CA202006010067

PATIENT
  Age: 17 Year
  Sex: Male
  Weight: 64.85 kg

DRUGS (4)
  1. GADOVIST [Suspect]
     Active Substance: GADOBUTROL
     Indication: MAGNETIC RESONANCE IMAGING
     Dosage: 5 ML, SINGLE
     Route: 065
  2. INFLIXIMAB [Concomitant]
     Active Substance: INFLIXIMAB
     Indication: PRODUCT USED FOR UNKNOWN INDICATION
     Dosage: 1 DOSAGE FORM, UNKNOWN
     Route: 065
  3. GLUCAGON. [Suspect]
     Active Substance: GLUCAGON
     Indication: MAGNETIC RESONANCE IMAGING
     Dosage: 1 MG, SINGLE
     Route: 065
  4. PREDNISONE. [Concomitant]
     Active Substance: PREDNISONE
     Indication: PRODUCT USED FOR UNKNOWN INDICATION
     Dosage: 1 DOSAGE FORM, UNKNOWN
     Route: 065

REACTIONS (8)
  - Nasal congestion [Unknown]
  - Sneezing [Unknown]
  - Throat irritation [Unknown]
  - Swelling face [Unknown]
  - Off label use [Unknown]
  - Malaise [Unknown]
  - Dyspnoea [Unknown]
  - Erythema [Unknown]
